FAERS Safety Report 8510861-2 (Version None)
Quarter: 2012Q3

REPORT INFORMATION
  Report Type: 
  Country: None (occurrence: None)
  Receive Date: 20120703
  Receipt Date: 20120619
  Transmission Date: 20120928
  Serious: Yes (Life-Threatening)
  Sender: FDA-Public Use
  Company Number: 2012SE41128

PATIENT
  Sex: Female

DRUGS (1)
  1. FOSCARNET [Suspect]
     Indication: PRODUCT USED FOR UNKNOWN INDICATION
     Dosage: INTRAVENOUS (BOT OTHERWISE SPECIFIED) FORMULATION: SOLUTION
     Route: 042

REACTIONS (3)
  - SEPTIC SHOCK [None]
  - RENAL FAILURE ACUTE [None]
  - MULTI-ORGAN FAILURE [None]
